FAERS Safety Report 4451934-3 (Version None)
Quarter: 2004Q3

REPORT INFORMATION
  Report Type: 
  Country: None (occurrence: None)
  Receive Date: 20040916
  Receipt Date: 20040903
  Transmission Date: 20050211
  Serious: Yes (Hospitalization)
  Sender: FDA-Public Use
  Company Number: 2004AL000069

PATIENT
  Age: 40 Year
  Sex: Female

DRUGS (2)
  1. TRAZODONE HCL [Suspect]
     Indication: DEPRESSION
     Dosage: 50 MG; HS
  2. SERTRALINE HCL [Suspect]
     Indication: DEPRESSION
     Dosage: 100 MG; QD

REACTIONS (8)
  - DISSOCIATIVE DISORDER [None]
  - DIZZINESS POSTURAL [None]
  - HEADACHE [None]
  - METABOLIC FUNCTION TEST ABNORMAL [None]
  - PAIN [None]
  - SPEECH DISORDER [None]
  - TINNITUS [None]
  - TREMOR [None]
